FAERS Safety Report 25338669 (Version 10)
Quarter: 2025Q3

REPORT INFORMATION
  Report Type: Report from Study
  Country: US (occurrence: US)
  Receive Date: 20250520
  Receipt Date: 20250929
  Transmission Date: 20251020
  Serious: Yes (Other)
  Sender: MALLINCKRODT
  Company Number: US-MALLINCKRODT-MNK202502699

PATIENT
  Age: 77 Year
  Sex: Female

DRUGS (6)
  1. CORTICOTROPIN [Suspect]
     Active Substance: CORTICOTROPIN
     Indication: Psoriatic arthropathy
     Route: 058
     Dates: start: 202505, end: 2025
  2. CORTICOTROPIN [Suspect]
     Active Substance: CORTICOTROPIN
     Indication: Psoriatic arthropathy
  3. CORTICOTROPIN [Suspect]
     Active Substance: CORTICOTROPIN
     Indication: Ankylosing spondylitis
     Route: 030
     Dates: start: 20240830
  4. CORTICOTROPIN [Suspect]
     Active Substance: CORTICOTROPIN
     Indication: Spinal osteoarthritis
     Dates: start: 2025
  5. RINVOQ [Concomitant]
     Active Substance: UPADACITINIB
  6. PREDNISONE [Concomitant]
     Active Substance: PREDNISONE

REACTIONS (10)
  - Psoriatic arthropathy [Recovering/Resolving]
  - Tooth disorder [Unknown]
  - Diverticulitis [Recovering/Resolving]
  - Balance disorder [Recovering/Resolving]
  - Illness [Recovering/Resolving]
  - Pain [Not Recovered/Not Resolved]
  - Ear swelling [Unknown]
  - Hypoacusis [Unknown]
  - Cystitis [Recovering/Resolving]
  - Malaise [Unknown]

NARRATIVE: CASE EVENT DATE: 20250605
